FAERS Safety Report 18343048 (Version 2)
Quarter: 2020Q4

REPORT INFORMATION
  Report Type: Spontaneous
  Country: JP (occurrence: JP)
  Receive Date: 20201005
  Receipt Date: 20201007
  Transmission Date: 20210113
  Serious: Yes (Death, Other)
  Sender: FDA-Public Use
  Company Number: JP-AMGEN-JPNSP2020159500

PATIENT

DRUGS (2)
  1. WARFARIN [Concomitant]
     Active Substance: WARFARIN
     Dosage: UNK
  2. ROMOSOZUMAB [Suspect]
     Active Substance: ROMOSOZUMAB
     Indication: OSTEOPOROSIS
     Dosage: 210 MILLIGRAM, Q4WK
     Route: 058
     Dates: start: 2019, end: 2019

REACTIONS (10)
  - Pneumonia [Fatal]
  - Vomiting [Unknown]
  - Injection site pain [Unknown]
  - Injection site swelling [Unknown]
  - International normalised ratio increased [Unknown]
  - Pancreatic enzymes increased [Unknown]
  - Therapeutic product effect incomplete [Unknown]
  - Pyrexia [Unknown]
  - Prothrombin time prolonged [Unknown]
  - Chronic obstructive pulmonary disease [Unknown]

NARRATIVE: CASE EVENT DATE: 2019
